FAERS Safety Report 9366043 (Version 1)
Quarter: 2013Q2

REPORT INFORMATION
  Report Type: Spontaneous
  Country: NL (occurrence: NL)
  Receive Date: 20130625
  Receipt Date: 20130625
  Transmission Date: 20140414
  Serious: Yes (Life-Threatening)
  Sender: FDA-Public Use
  Company Number: NL-TEVA-413570ISR

PATIENT
  Age: 71 Year
  Sex: Female

DRUGS (2)
  1. METHOTREXAAT TABLET 2,5MG [Suspect]
     Indication: RHEUMATOID ARTHRITIS
     Dosage: 10 TO 15 MG / WEEK
     Route: 048
     Dates: start: 1997, end: 20130301
  2. INFLIXIMAB INFUSIEPOEDER 100MG [Suspect]
     Indication: RHEUMATOID ARTHRITIS
     Dosage: 300MG / 10 WEEK
     Route: 042
     Dates: start: 2002, end: 20130301

REACTIONS (1)
  - Diffuse large B-cell lymphoma stage IV [Recovering/Resolving]
